FAERS Safety Report 10479134 (Version 7)
Quarter: 2015Q3

REPORT INFORMATION
  Report Type: Spontaneous
  Country: US (occurrence: US)
  Receive Date: 20140926
  Receipt Date: 20150909
  Transmission Date: 20151125
  Serious: Yes (Life-Threatening, Hospitalization, Other)
  Sender: FDA-Public Use
  Company Number: US-PFIZER INC-2014265805

PATIENT
  Age: 55 Year
  Sex: Male
  Weight: 86 kg

DRUGS (1)
  1. CELEBREX [Suspect]
     Active Substance: CELECOXIB
     Indication: BACK PAIN
     Dosage: 200MG ^TABLET^ AND THEN CAPSULE ONCE A DAY AFTER IN MORNING TWICE DAILY
     Dates: start: 19991124, end: 2002

REACTIONS (10)
  - Venous occlusion [Unknown]
  - Myocardial infarction [Not Recovered/Not Resolved]
  - Dyspnoea [Not Recovered/Not Resolved]
  - Angiopathy [Not Recovered/Not Resolved]
  - Cardiac disorder [Not Recovered/Not Resolved]
  - Lung disorder [Unknown]
  - Impaired work ability [Not Recovered/Not Resolved]
  - Blood pressure increased [Unknown]
  - Coronary artery occlusion [Unknown]
  - Seizure [Unknown]

NARRATIVE: CASE EVENT DATE: 2002
